FAERS Safety Report 16171715 (Version 1)
Quarter: 2019Q2

REPORT INFORMATION
  Report Type: Report from Study
  Country: US (occurrence: US)
  Receive Date: 20190408
  Receipt Date: 20190408
  Transmission Date: 20190711
  Serious: Yes (Hospitalization)
  Sender: FDA-Public Use
  Company Number: US-EXELIXIS-CABO-19019923

PATIENT
  Age: 69 Year
  Sex: Male

DRUGS (33)
  1. ZOFRAN [Concomitant]
     Active Substance: ONDANSETRON HYDROCHLORIDE
  2. METHYL SALICYLATE [Concomitant]
     Active Substance: METHYL SALICYLATE
  3. PROVENTIL [Concomitant]
     Active Substance: ALBUTEROL
  4. GABAPENTIN. [Concomitant]
     Active Substance: GABAPENTIN
  5. AMLODIPINE [Concomitant]
     Active Substance: AMLODIPINE BESYLATE
  6. VITAMIN D NOS [Concomitant]
     Active Substance: VITAMIN D NOS
  7. VITAMIN B12 [Concomitant]
     Active Substance: CYANOCOBALAMIN
  8. RANITIDINE. [Concomitant]
     Active Substance: RANITIDINE
  9. DICLOFENAC SODIUM. [Concomitant]
     Active Substance: DICLOFENAC SODIUM
  10. METOPROLOL. [Concomitant]
     Active Substance: METOPROLOL
  11. CABOMETYX [Suspect]
     Active Substance: CABOZANTINIB S-MALATE
     Indication: RENAL CANCER
     Dosage: 60 MG, QD
     Route: 048
     Dates: start: 20190216
  12. CYMBALTA [Concomitant]
     Active Substance: DULOXETINE HYDROCHLORIDE
  13. TRIAMCINOLONE ACETONIDE. [Concomitant]
     Active Substance: TRIAMCINOLONE ACETONIDE
  14. FISH OIL [Concomitant]
     Active Substance: FISH OIL
  15. VOLTAREN [Concomitant]
     Active Substance: DICLOFENAC SODIUM
  16. NAPROXEN. [Concomitant]
     Active Substance: NAPROXEN
  17. ASPIRIN. [Concomitant]
     Active Substance: ASPIRIN
  18. CETRIZINE [Concomitant]
     Active Substance: CETIRIZINE HYDROCHLORIDE
  19. IBUPROFEN. [Concomitant]
     Active Substance: IBUPROFEN
  20. CHLORHEXIDINE GLUCONATE. [Concomitant]
     Active Substance: CHLORHEXIDINE GLUCONATE
  21. GLIPIZIDE. [Concomitant]
     Active Substance: GLIPIZIDE
  22. KLOR-CON [Concomitant]
     Active Substance: POTASSIUM CHLORIDE
  23. PREDNISONE. [Concomitant]
     Active Substance: PREDNISONE
  24. PSEUDOEPHEDRINE. [Concomitant]
     Active Substance: PSEUDOEPHEDRINE HYDROCHLORIDE
  25. FLAXSEED [Concomitant]
     Active Substance: FLAX SEED
  26. VITAMIN D3 [Concomitant]
     Active Substance: CHOLECALCIFEROL
  27. AMOXICILLIN. [Suspect]
     Active Substance: AMOXICILLIN
     Dosage: UNK
  28. MS CONTIN [Concomitant]
     Active Substance: MORPHINE SULFATE
  29. ATORVASTATIN [Concomitant]
     Active Substance: ATORVASTATIN
  30. MULTIVITAMINS, COMBINATIONS [Concomitant]
     Active Substance: VITAMINS
  31. OMEPRAZOLE. [Concomitant]
     Active Substance: OMEPRAZOLE
  32. FUROSEMIDE. [Concomitant]
     Active Substance: FUROSEMIDE
  33. MORPHINE SULFATE. [Concomitant]
     Active Substance: MORPHINE SULFATE

REACTIONS (3)
  - Diarrhoea [Not Recovered/Not Resolved]
  - Pneumonia [Not Recovered/Not Resolved]
  - Sepsis [Not Recovered/Not Resolved]

NARRATIVE: CASE EVENT DATE: 20190314
